FAERS Safety Report 5208880-7 (Version None)
Quarter: 2007Q1

REPORT INFORMATION
  Report Type: 
  Country: None (occurrence: None)
  Receive Date: 20070116
  Receipt Date: 20070109
  Transmission Date: 20070707
  Serious: Yes (Hospitalization)
  Sender: FDA-Public Use
  Company Number: US-ELI_LILLY_AND_COMPANY-US200609007455

PATIENT
  Age: 34 Year
  Sex: Female
  Weight: 86.621 kg

DRUGS (7)
  1. CLOZARIL [Concomitant]
     Dates: start: 20010301, end: 20030101
  2. HALDOL [Concomitant]
     Dates: start: 20011201
  3. DEPAKOTE [Concomitant]
     Dates: start: 20030101
  4. XANAX                                   /USA/ [Concomitant]
     Dates: start: 20030101
  5. CLONAZEPAM [Concomitant]
     Dates: start: 20010101, end: 20030101
  6. PAXIL [Concomitant]
     Dates: start: 20030101
  7. ZYPREXA [Suspect]
     Dosage: 15 MG, UNK
     Dates: start: 20011201, end: 20030101

REACTIONS (7)
  - BILIARY TRACT DISORDER [None]
  - BIOPSY LIVER [None]
  - BLOOD CHOLESTEROL INCREASED [None]
  - BLOOD TRIGLYCERIDES INCREASED [None]
  - DIABETES MELLITUS [None]
  - HEPATITIS VIRAL [None]
  - HYPERGLYCAEMIA [None]
